FAERS Safety Report 9616983 (Version 4)
Quarter: 2013Q4

REPORT INFORMATION
  Report Type: Report from Study
  Country: US (occurrence: US)
  Receive Date: 20131011
  Receipt Date: 20131121
  Transmission Date: 20140711
  Serious: Yes (Death, Hospitalization)
  Sender: FDA-Public Use
  Company Number: US-ACTELION-A-NJ2013-89027

PATIENT
  Age: 60 Year
  Sex: Female

DRUGS (3)
  1. VELETRI [Suspect]
     Indication: COR PULMONALE CHRONIC
     Dosage: 16 NG/KG, PER MIN
     Route: 042
     Dates: start: 20130621, end: 20131112
  2. SILDENAFIL [Concomitant]
  3. RIOCIGUAT [Concomitant]

REACTIONS (5)
  - Death [Fatal]
  - Renal impairment [Recovering/Resolving]
  - Laboratory test abnormal [Recovering/Resolving]
  - Dehydration [Unknown]
  - Vomiting [Unknown]
